FAERS Safety Report 10640701 (Version 1)
Quarter: 2014Q4

REPORT INFORMATION
  Report Type: Spontaneous
  Country: NL (occurrence: NL)
  Receive Date: 20141209
  Receipt Date: 20141209
  Transmission Date: 20150529
  Serious: Yes (Death)
  Sender: FDA-Public Use
  Company Number: NL-ACTELION-A-CH2014-108961

PATIENT
  Age: 72 Year
  Sex: Female

DRUGS (1)
  1. VELETRI [Suspect]
     Active Substance: EPOPROSTENOL
     Indication: PULMONARY HYPERTENSION
     Dosage: 2000 MCG, UNK
     Route: 042
     Dates: start: 20140806, end: 20141127

REACTIONS (1)
  - Death [Fatal]

NARRATIVE: CASE EVENT DATE: 20141127
